FAERS Safety Report 5993962-2 (Version None)
Quarter: 2008Q4

REPORT INFORMATION
  Report Type: 
  Country: None (occurrence: None)
  Receive Date: 20081212
  Receipt Date: 20081205
  Transmission Date: 20090506
  Serious: Yes (Other)
  Sender: FDA-Public Use
  Company Number: B0535906A

PATIENT
  Age: 62 Year
  Sex: Male

DRUGS (2)
  1. ARIXTRA [Suspect]
     Dosage: 2.5MG PER DAY
     Route: 058
     Dates: start: 20080210, end: 20080318
  2. ZYLORIC [Concomitant]
     Route: 065

REACTIONS (5)
  - ERYTHEMA [None]
  - PAIN [None]
  - PURPURA [None]
  - SKIN IRRITATION [None]
  - VASCULITIS NECROTISING [None]
